FAERS Safety Report 8523694-8 (Version None)
Quarter: 2012Q3

REPORT INFORMATION
  Report Type: 
  Country: None (occurrence: None)
  Receive Date: 20120720
  Receipt Date: 20120711
  Transmission Date: 20120928
  Serious: Yes (Death)
  Sender: FDA-Public Use
  Company Number: SE-JNJFOC-20090305644

PATIENT
  Age: 47 Year
  Sex: Male

DRUGS (8)
  1. HYDROXOCOBALAMIN [Concomitant]
  2. INDOMEE [Concomitant]
  3. REMICADE [Suspect]
     Route: 042
     Dates: start: 20090202
  4. BRICANYL [Concomitant]
  5. DIAZEPAM [Concomitant]
  6. REMICADE [Suspect]
     Indication: ANKYLOSING SPONDYLITIS
     Route: 042
     Dates: start: 20090115
  7. ANTI-ANXIETY DRUG [Concomitant]
     Dosage: AS NEEDED
  8. NSAIDS [Concomitant]
     Dosage: LONG TERM

REACTIONS (1)
  - DEATH [None]
